FAERS Safety Report 6202588-7 (Version None)
Quarter: 2009Q2

REPORT INFORMATION
  Report Type: 
  Country: None (occurrence: None)
  Receive Date: 20090526
  Receipt Date: 20090520
  Transmission Date: 20091009
  Serious: No
  Sender: FDA-Public Use
  Company Number: US-B.I. PHARMACEUTICALS,INC./RIDGEFIELD-2009-BP-06339BP

PATIENT
  Sex: Female

DRUGS (10)
  1. SPIRIVA [Suspect]
     Indication: CHRONIC OBSTRUCTIVE PULMONARY DISEASE
     Dosage: 18MCG
     Route: 055
     Dates: start: 20060501
  2. SPIRIVA [Suspect]
     Indication: BRONCHITIS
  3. LOVASTATIN [Concomitant]
     Indication: BLOOD CHOLESTEROL INCREASED
     Dosage: 40MG
  4. FLUID PILL [Concomitant]
     Indication: HYPERTENSION
  5. PEPCID [Concomitant]
     Indication: FLATULENCE
  6. ASPIRIN [Concomitant]
  7. XANAX [Concomitant]
     Indication: NECK PAIN
  8. XANAX [Concomitant]
     Indication: BACK PAIN
  9. PAIN PATCH [Concomitant]
     Indication: NECK PAIN
  10. PAIN PATCH [Concomitant]
     Indication: BACK PAIN

REACTIONS (1)
  - DRUG INEFFECTIVE [None]
